FAERS Safety Report 7443853-5 (Version None)
Quarter: 2011Q2

REPORT INFORMATION
  Report Type: 
  Country: None (occurrence: None)
  Receive Date: 20110428
  Receipt Date: 20110420
  Transmission Date: 20111010
  Serious: Yes (Hospitalization)
  Sender: FDA-Public Use
  Company Number: NL-BAYER-2011-034449

PATIENT
  Age: 61 Year
  Sex: Female

DRUGS (4)
  1. ASCAL [Concomitant]
     Dosage: UNK
     Dates: start: 20110204
  2. PANTOZOL [Concomitant]
     Dosage: UNK
     Dates: start: 20110204
  3. SIMVASTATIN [Concomitant]
     Dosage: 10 MG, QD
     Dates: start: 20110204
  4. SORAFENIB (RAF KINASE INHIBITOR) [Suspect]
     Indication: METASTATIC RENAL CELL CARCINOMA
     Dosage: 400 MG, BID
     Route: 048
     Dates: start: 20110204, end: 20110210

REACTIONS (1)
  - GOUT [None]
